FAERS Safety Report 24046221 (Version 1)
Quarter: 2024Q3

REPORT INFORMATION
  Report Type: Spontaneous
  Country: GB (occurrence: GB)
  Receive Date: 20240703
  Receipt Date: 20240703
  Transmission Date: 20241017
  Serious: Yes (Other)
  Sender: FRESENIUS KABI
  Company Number: GB-MHRA-TPP11155958C2182674YC1719569994210

PATIENT
  Age: 36 Year
  Sex: Female
  Weight: 106 kg

DRUGS (15)
  1. ADALIMUMAB [Suspect]
     Active Substance: ADALIMUMAB\ISOPROPYL ALCOHOL
     Indication: Ill-defined disorder
     Dosage: FORM OF ADMIN: TPP YC - PLEASE RECLASSIFY
     Dates: start: 20240628
  2. METFORMIN [Concomitant]
     Active Substance: METFORMIN HYDROCHLORIDE
     Indication: Ill-defined disorder
     Dosage: TAKE ONE A DAY FOR 1-2 WEEKS AND THEN 2 PER DAY...?FOA-TPP YC - PLEASE RECLASSIFY
     Dates: start: 20240424
  3. DESOGESTREL [Concomitant]
     Active Substance: DESOGESTREL
     Indication: Ill-defined disorder
     Dosage: TAKE ONE TABLET ONCE A DAY, AT THE SAME TIME EA...?FOA-TPP YC - PLEASE RECLASSIFY
     Dates: start: 20240520
  4. COLESEVELAM HYDROCHLORIDE [Concomitant]
     Active Substance: COLESEVELAM HYDROCHLORIDE
     Indication: Ill-defined disorder
     Dosage: TAKE ONE THREE TIMES A DAY?FOA-TPP YC - PLEASE RECLASSIFY
     Dates: start: 20230417
  5. DERMOL [Concomitant]
     Active Substance: BENZALKONIUM CHLORIDE\CHLORHEXIDINE HYDROCHLORIDE\ISOPROPYL MYRISTATE\PARAFFIN
     Indication: Ill-defined disorder
     Dosage: USE AS A WASH?FOA-TPP YC - PLEASE RECLASSIFY
     Dates: start: 20230417
  6. EPIDUO [Concomitant]
     Active Substance: ADAPALENE\BENZOYL PEROXIDE
     Indication: Ill-defined disorder
     Dosage: APPLY THINLY ONCE DAILY IN THE EVENING.?FOA-TPP YC - PLEASE RECLASSIFY
     Dates: start: 20230417
  7. ERYTHROMYCIN [Concomitant]
     Active Substance: ERYTHROMYCIN
     Indication: Ill-defined disorder
     Dosage: TAKE TWO TWICE DAILY?FOA-TPP YC - PLEASE RECLASSIFY
     Dates: start: 20230417, end: 20240628
  8. EUMOVATE [Concomitant]
     Active Substance: CLOBETASONE BUTYRATE
     Indication: Ill-defined disorder
     Dosage: ONCE DAILY FOR 4 WEEKS TO EARS?FOA-TPP YC - PLEASE RECLASSIFY
     Dates: start: 20230417
  9. MERCAPTOPURINE [Concomitant]
     Active Substance: MERCAPTOPURINE
     Indication: Ill-defined disorder
     Dosage: 1/2 A TABLET ONCE A DAY?FOA-TPP YC - PLEASE RECLASSIFY
     Dates: start: 20230417
  10. ALLOPURINOL [Concomitant]
     Active Substance: ALLOPURINOL
     Indication: Ill-defined disorder
     Dosage: TAKE ONE DAILY?FOA-TPP YC - PLEASE RECLASSIFY
     Dates: start: 20230502
  11. AZELAIC ACID [Concomitant]
     Active Substance: AZELAIC ACID
     Indication: Ill-defined disorder
     Dosage: USE AS AGREED WITH DERMATOLOGIST?FOA-TPP YC - PLEASE RECLASSIFY
     Dates: start: 20231105
  12. IVERMECTIN [Concomitant]
     Active Substance: IVERMECTIN
     Indication: Ill-defined disorder
     Dosage: USE AS DIRECTED BY DERMATOLOGIST?FOA-TPP YC - PLEASE RECLASSIFY
     Dates: start: 20231105
  13. CANDESARTAN [Concomitant]
     Active Substance: CANDESARTAN
     Indication: Ill-defined disorder
     Dosage: TAKE ONE ONCE DAILY?FOA-TPP YC - PLEASE RECLASSIFY
     Dates: start: 20231108, end: 20240520
  14. AMLODIPINE [Concomitant]
     Active Substance: AMLODIPINE BESYLATE
     Indication: Ill-defined disorder
     Dosage: TAKE TWO DAILY?FOA-TPP YC - PLEASE RECLASSIFY
     Dates: start: 20240306
  15. NORETHINDRONE [Concomitant]
     Active Substance: NORETHINDRONE
     Indication: Ill-defined disorder
     Dosage: TAKE ONE TABLET THREE TIMES A DAY, 3 DAYS BEFOR...?FOA-TPP YC - PLEASE RECLASSIFY
     Dates: start: 20240521, end: 20240628

REACTIONS (1)
  - Autoimmune hepatitis [Recovered/Resolved]

NARRATIVE: CASE EVENT DATE: 20240628
